FAERS Safety Report 11146379 (Version 1)
Quarter: 2015Q2

REPORT INFORMATION
  Report Type: Spontaneous
  Country: US (occurrence: None)
  Receive Date: 20150527
  Receipt Date: 20150527
  Transmission Date: 20150821
  Serious: Yes (Disabling)
  Sender: FDA-Public Use
  Company Number: None

PATIENT
  Age: 68 Year
  Sex: Female
  Weight: 54.43 kg

DRUGS (6)
  1. CALCIUM [Concomitant]
     Active Substance: CALCIUM
  2. VITAMIN D3 [Concomitant]
     Active Substance: CHOLECALCIFEROL
  3. FISH OIL [Concomitant]
     Active Substance: FISH OIL
  4. MULTI-VITAMIN FOR 50+ [Concomitant]
  5. OSTEO-BIFLEX [Concomitant]
  6. RESTASIS [Suspect]
     Active Substance: CYCLOSPORINE
     Indication: DRY EYE
     Route: 047
     Dates: start: 20141105, end: 20150203

REACTIONS (4)
  - Speech disorder [None]
  - Oropharyngeal pain [None]
  - Laryngitis [None]
  - Pharyngeal inflammation [None]

NARRATIVE: CASE EVENT DATE: 20141201
